FAERS Safety Report 7203341-8 (Version None)
Quarter: 2010Q4

REPORT INFORMATION
  Report Type: 
  Country: None (occurrence: None)
  Receive Date: 20101230
  Receipt Date: 20101123
  Transmission Date: 20110411
  Serious: Yes (Hospitalization)
  Sender: FDA-Public Use
  Company Number: SE-AMGEN-SWESP2010006894

PATIENT

DRUGS (7)
  1. ENBREL [Suspect]
     Indication: RHEUMATOID ARTHRITIS
     Dosage: 50 MG, WEEKLY
     Route: 058
     Dates: start: 20051120, end: 20070208
  2. NEXIUM [Concomitant]
     Dosage: 20 MG, UNK
  3. LIVIAL [Concomitant]
     Dosage: 2.5 MG, UNK
  4. LOSARTAN POTASSIUM AND HYDROCHLOROTHIAZIDE [Concomitant]
     Dosage: [HYDROCHLOROTHIAZIDE 50MG]/[LOSARTAN POTASSIUM 12.5 MG]
  5. METHOTREXATE [Concomitant]
     Dosage: 2.5 MG, UNK
  6. LASIX [Concomitant]
     Dosage: 30 MG, UNK
  7. IBRUPROFEN [Concomitant]
     Dosage: 600 MG, UNK

REACTIONS (1)
  - NERVOUS SYSTEM DISORDER [None]
